FAERS Safety Report 26038971 (Version 2)
Quarter: 2025Q4

REPORT INFORMATION
  Report Type: Report from Study
  Country: CA (occurrence: CA)
  Receive Date: 20251113
  Receipt Date: 20251122
  Transmission Date: 20260118
  Serious: Yes (Other)
  Sender: CELLTRION
  Company Number: CA-CELLTRION INC.-2025CA041183

PATIENT

DRUGS (1)
  1. USTEKINUMAB [Suspect]
     Active Substance: USTEKINUMAB
     Indication: Psoriatic arthropathy
     Dosage: 45 MG EVERY 12 WEEKS
     Route: 058
     Dates: start: 20250317, end: 20251104

REACTIONS (6)
  - Decreased appetite [Unknown]
  - Loss of personal independence in daily activities [Unknown]
  - Abdominal pain [Unknown]
  - Headache [Unknown]
  - Drug effect less than expected [Unknown]
  - Therapy change [Unknown]

NARRATIVE: CASE EVENT DATE: 20251104
